FAERS Safety Report 11729975 (Version 1)
Quarter: 2015Q4

REPORT INFORMATION
  Report Type: Spontaneous
  Country: US (occurrence: US)
  Receive Date: 20151110
  Receipt Date: 20151110
  Transmission Date: 20160304
  Serious: No
  Sender: FDA-Public Use
  Company Number: US-ELI_LILLY_AND_COMPANY-US201111005118

PATIENT
  Age: 83 Year
  Sex: Female
  Weight: 56.24 kg

DRUGS (9)
  1. METANX [Concomitant]
     Active Substance: LEVOMEFOLATE CALCIUM\METHYLCOBALAMIN\PYRIDOXAL PHOSPHATE ANHYDROUS
  2. FORTEO [Suspect]
     Active Substance: TERIPARATIDE
     Indication: SPINAL FRACTURE
     Dosage: 20 UG, QD
     Route: 058
     Dates: start: 20110427, end: 20111020
  3. DIOVAN [Concomitant]
     Active Substance: VALSARTAN
  4. LOPRESSOR [Concomitant]
     Active Substance: METOPROLOL TARTRATE
  5. TRICOR [Concomitant]
     Active Substance: FENOFIBRATE
  6. LIPITOR [Concomitant]
     Active Substance: ATORVASTATIN CALCIUM
  7. OXYCODONE [Concomitant]
     Active Substance: OXYCODONE
  8. VOLTAREN [Concomitant]
     Active Substance: DICLOFENAC SODIUM
  9. ALPRAZOLAM. [Concomitant]
     Active Substance: ALPRAZOLAM

REACTIONS (2)
  - Off label use [Recovered/Resolved]
  - Hypercalcaemia [Recovered/Resolved]
